FAERS Safety Report 9188074 (Version 1)
Quarter: 2013Q1

REPORT INFORMATION
  Report Type: Spontaneous
  Country: US (occurrence: US)
  Receive Date: 20130325
  Receipt Date: 20130325
  Transmission Date: 20140127
  Serious: No
  Sender: FDA-Public Use
  Company Number: US-MYLANLABS-2013S1002066

PATIENT
  Age: 57 Year
  Sex: Male

DRUGS (4)
  1. FENTANYL TRANSDERMAL SYSTEM [Suspect]
     Dosage: Q72HR
     Route: 062
     Dates: start: 20131129
  2. PERCOCET [Concomitant]
     Indication: PAIN
     Route: 048
  3. NIFEDIPINE [Concomitant]
     Route: 048
  4. PROGRAS [Concomitant]
     Indication: LIVER TRANSPLANT
     Route: 048

REACTIONS (3)
  - Drug ineffective [Not Recovered/Not Resolved]
  - Pain [Not Recovered/Not Resolved]
  - Drug screen negative [Not Recovered/Not Resolved]
